FAERS Safety Report 9419279 (Version 1)
Quarter: 2013Q3

REPORT INFORMATION
  Report Type: Spontaneous
  Country: US (occurrence: US)
  Receive Date: 20130725
  Receipt Date: 20130725
  Transmission Date: 20140515
  Serious: Yes (Life-Threatening, Hospitalization, Disabling)
  Sender: FDA-Public Use
  Company Number: US-GLAXOSMITHKLINE-A1000133A

PATIENT
  Age: 24 Year
  Sex: Female

DRUGS (3)
  1. LAMICTAL [Suspect]
     Indication: EPILEPSY
     Dosage: 200MG THREE TIMES PER DAY
     Route: 048
  2. BANZEL [Concomitant]
  3. ETHOSUXIMIDE [Concomitant]

REACTIONS (2)
  - Off label use [Unknown]
  - Drug ineffective [Unknown]
